FAERS Safety Report 5114938-3 (Version None)
Quarter: 2006Q3

REPORT INFORMATION
  Report Type: 
  Country: None (occurrence: None)
  Receive Date: 20060925
  Receipt Date: 20060925
  Transmission Date: 20061208
  Serious: Yes (Hospitalization)
  Sender: FDA-Public Use
  Company Number: None

PATIENT
  Age: 43 Year
  Sex: Male
  Weight: 102.0593 kg

DRUGS (1)
  1. LEVAQUIN [Suspect]
     Indication: PROSTATE INFECTION
     Dosage: 1 PILL   DAILY   PO
     Route: 048
     Dates: start: 20060904, end: 20060910

REACTIONS (9)
  - ADVERSE DRUG REACTION [None]
  - ARTHRALGIA [None]
  - ASTHENIA [None]
  - DIZZINESS [None]
  - DRUG INEFFECTIVE [None]
  - HYPERHIDROSIS [None]
  - HYPERSENSITIVITY [None]
  - SUNBURN [None]
  - TREMOR [None]
